FAERS Safety Report 11849558 (Version 1)
Quarter: 2015Q4

REPORT INFORMATION
  Report Type: Spontaneous
  Country: NL (occurrence: NL)
  Receive Date: 20151218
  Receipt Date: 20151218
  Transmission Date: 20160305
  Serious: Yes (Hospitalization)
  Sender: FDA-Public Use
  Company Number: NL-ROCHE-1678255

PATIENT

DRUGS (2)
  1. PERTUZUMAB [Suspect]
     Active Substance: PERTUZUMAB
     Indication: METASTATIC SALIVARY GLAND CANCER
     Route: 065
  2. TRASTUZUMAB [Suspect]
     Active Substance: TRASTUZUMAB
     Indication: METASTATIC SALIVARY GLAND CANCER
     Route: 065

REACTIONS (2)
  - Erysipelas [Recovered/Resolved]
  - Off label use [Unknown]
